FAERS Safety Report 14334392 (Version 18)
Quarter: 2022Q3

REPORT INFORMATION
  Report Type: Spontaneous
  Country: GB (occurrence: GB)
  Receive Date: 20171228
  Receipt Date: 20220922
  Transmission Date: 20221026
  Serious: Yes (Other)
  Sender: FDA-Public Use
  Company Number: PHHY2017GB192858

PATIENT
  Age: 44 Year
  Sex: Male

DRUGS (6)
  1. METHYLPHENIDATE HYDROCHLORIDE [Suspect]
     Active Substance: METHYLPHENIDATE HYDROCHLORIDE
     Indication: Product used for unknown indication
     Dosage: UNK (ABUSE)
     Route: 050
     Dates: start: 20170201, end: 20170201
  2. METHYLPHENIDATE HYDROCHLORIDE [Suspect]
     Active Substance: METHYLPHENIDATE HYDROCHLORIDE
     Dosage: UNK (ABUSE, DOSAGE FORM: UNSPECIFIED, BETWEEN FEB 2017 AND MAY 2017);
     Route: 050
     Dates: start: 20170201, end: 20170501
  3. METHYLPHENIDATE HYDROCHLORIDE [Suspect]
     Active Substance: METHYLPHENIDATE HYDROCHLORIDE
     Dosage: UNK (UNSPECIFIED, BETWEEN FEBRUARY 2017 AND MAY 2017);
     Route: 050
     Dates: start: 20170201, end: 20170501
  4. PREGABALIN [Suspect]
     Active Substance: PREGABALIN
     Indication: Product used for unknown indication
     Dosage: UNK (BETWEEN FEBRUARY 2017 AND MAY 2017)
     Route: 065
     Dates: start: 20170201, end: 20170201
  5. PREGABALIN [Suspect]
     Active Substance: PREGABALIN
     Dosage: UNK (BETWEEN FEBRUARY 2017 AND MAY 2017)
     Route: 065
     Dates: start: 201702, end: 201705
  6. PREGABALIN [Suspect]
     Active Substance: PREGABALIN
     Dosage: UNK (DOSAGE FORM: UNSPECIFIED, BETWEEN FEBRUARY 2017 AND MAY 2017; ;
     Route: 065
     Dates: start: 20170201, end: 20170501

REACTIONS (4)
  - Loss of consciousness [Recovered/Resolved]
  - Drug abuse [Recovered/Resolved]
  - Drug dependence [Recovered/Resolved]
  - Prescription drug used without a prescription [Recovered/Resolved]
